FAERS Safety Report 7339087-5 (Version None)
Quarter: 2011Q1

REPORT INFORMATION
  Report Type: 
  Country: None (occurrence: None)
  Receive Date: 20110228
  Receipt Date: 20110215
  Transmission Date: 20110831
  Serious: Yes (Disabling, Other)
  Sender: FDA-Public Use
  Company Number: 025651

PATIENT
  Age: 65 Year
  Sex: Female
  Weight: 76 kg

DRUGS (11)
  1. TENORDATE [Concomitant]
  2. ACTONEL [Concomitant]
  3. KALEORID [Concomitant]
  4. LEVOTHYROX [Concomitant]
  5. OROCAL D(3) [Concomitant]
  6. MODURETIC 5-50 [Concomitant]
  7. CRESTOR [Concomitant]
  8. METOJECT /00113801/ [Concomitant]
  9. CIMZIA [Suspect]
     Indication: RHEUMATOID ARTHRITIS
     Dosage: (200 MG 1X/2 WEEKS SUBCUTANEOUS)
     Route: 058
     Dates: start: 20101201
  10. CORTANCYL [Concomitant]
  11. SPECIAFOLDINE [Concomitant]

REACTIONS (7)
  - APHASIA [None]
  - BRADYCARDIA [None]
  - ISCHAEMIC STROKE [None]
  - ATRIAL FIBRILLATION [None]
  - FALL [None]
  - ATRIAL FLUTTER [None]
  - LOSS OF CONSCIOUSNESS [None]
